FAERS Safety Report 24128905 (Version 1)
Quarter: 2024Q3

REPORT INFORMATION
  Report Type: Spontaneous
  Country: US (occurrence: US)
  Receive Date: 20240723
  Receipt Date: 20240723
  Transmission Date: 20241016
  Serious: Yes (Other)
  Sender: BIOMARIN
  Company Number: US-BIOMARINAP-US-2024-159319

PATIENT

DRUGS (1)
  1. PALYNZIQ [Suspect]
     Active Substance: PEGVALIASE-PQPZ
     Indication: Product used for unknown indication
     Route: 065

REACTIONS (2)
  - Anaphylactic reaction [Unknown]
  - Off label use [Unknown]

NARRATIVE: CASE EVENT DATE: 20240721
